FAERS Safety Report 13583539 (Version 1)
Quarter: 2017Q2

REPORT INFORMATION
  Report Type: Report from Study
  Country: None (occurrence: IT)
  Receive Date: 20170526
  Receipt Date: 20170526
  Transmission Date: 20170830
  Serious: Yes (Other)
  Sender: FDA-Public Use
  Company Number: IT-ABBVIE-17K-083-1956774-00

PATIENT
  Age: 80 Year
  Sex: Male

DRUGS (1)
  1. DUODOPA [Suspect]
     Active Substance: CARBIDOPA\LEVODOPA
     Indication: PARKINSON^S DISEASE
     Dosage: MD 8,5+3??CR 4,9??ED 2,5
     Route: 050
     Dates: start: 20160628, end: 20170522

REACTIONS (1)
  - Peripheral nerve injury [Unknown]

NARRATIVE: CASE EVENT DATE: 20170421
